FAERS Safety Report 22391236 (Version 1)
Quarter: 2023Q2

REPORT INFORMATION
  Report Type: Spontaneous
  Country: US (occurrence: US)
  Receive Date: 20230601
  Receipt Date: 20230601
  Transmission Date: 20230721
  Serious: Yes (Life-Threatening, Hospitalization, Other)
  Sender: FDA-Public Use
  Company Number: US-ALKEM LABORATORIES LIMITED-US-ALKEM-2023-05784

PATIENT
  Age: 63 Year
  Sex: Male

DRUGS (6)
  1. TICAGRELOR [Interacting]
     Active Substance: TICAGRELOR
     Indication: Acute myocardial infarction
     Dosage: UNK
     Route: 065
  2. ROSUVASTATIN [Interacting]
     Active Substance: ROSUVASTATIN
     Indication: Acute myocardial infarction
     Dosage: UNK
     Route: 065
  3. SIMVASTATIN [Interacting]
     Active Substance: SIMVASTATIN
     Indication: Acute myocardial infarction
     Dosage: UNK
     Route: 065
  4. ASPIRIN [Concomitant]
     Active Substance: ASPIRIN
     Indication: Acute myocardial infarction
     Dosage: UNK
     Route: 065
  5. HEPARIN [Concomitant]
     Active Substance: HEPARIN SODIUM
     Indication: Acute myocardial infarction
     Dosage: UNK
     Route: 042
  6. METOPROLOL [Concomitant]
     Active Substance: METOPROLOL
     Indication: Acute myocardial infarction
     Dosage: UNK
     Route: 065

REACTIONS (3)
  - Acute kidney injury [Recovered/Resolved]
  - Rhabdomyolysis [Recovered/Resolved]
  - Drug interaction [Unknown]
